FAERS Safety Report 5065750-5 (Version None)
Quarter: 2006Q3

REPORT INFORMATION
  Report Type: 
  Country: None (occurrence: None)
  Receive Date: 20060725
  Receipt Date: 20060712
  Transmission Date: 20061208
  Serious: Yes (Other)
  Sender: FDA-Public Use
  Company Number: 2006085765

PATIENT
  Age: 61 Year
  Sex: Male

DRUGS (3)
  1. ZYVOX [Suspect]
     Indication: PNEUMONIA STAPHYLOCOCCAL
     Dosage: 1200 MG, INTRAVENOUS
     Route: 042
     Dates: start: 20060701, end: 20060705
  2. BETAMETHASONE [Concomitant]
  3. MEROPENEM [Concomitant]

REACTIONS (1)
  - HYPONATRAEMIA [None]
